FAERS Safety Report 5318813-0 (Version None)
Quarter: 2007Q2

REPORT INFORMATION
  Report Type: 
  Country: None (occurrence: None)
  Receive Date: 20070504
  Receipt Date: 20070504
  Transmission Date: 20071010
  Serious: Yes (Hospitalization)
  Sender: FDA-Public Use
  Company Number: None

PATIENT
  Age: 52 Year
  Sex: Male

DRUGS (2)
  1. FLUOROURACIL [Suspect]
     Indication: COLON CANCER
     Dosage: 850MG IV DAILY
     Route: 042
     Dates: start: 20070305, end: 20070309
  2. LEUCOVORIN 40MG IV DAILY [Suspect]
     Indication: COLON CANCER
     Dosage: 40MG IV DAILY
     Route: 042
     Dates: start: 20070305, end: 20070309

REACTIONS (3)
  - FEBRILE NEUTROPENIA [None]
  - HYPOTENSION [None]
  - INFLUENZA [None]
